FAERS Safety Report 13857836 (Version 2)
Quarter: 2017Q3

REPORT INFORMATION
  Report Type: Report from Study
  Country: US (occurrence: US)
  Receive Date: 20170811
  Receipt Date: 20170818
  Transmission Date: 20171127
  Serious: Yes (Hospitalization)
  Sender: FDA-Public Use
  Company Number: PHEH2017US024931

PATIENT
  Age: 48 Year
  Sex: Female
  Weight: 86.17 kg

DRUGS (1)
  1. GILENYA [Suspect]
     Active Substance: FINGOLIMOD HYDROCHLORIDE
     Indication: RELAPSING-REMITTING MULTIPLE SCLEROSIS
     Dosage: 0.5 MG, QD
     Route: 048
     Dates: start: 20170802

REACTIONS (6)
  - Chills [Unknown]
  - Haematochezia [Unknown]
  - Colitis [Recovering/Resolving]
  - Frequent bowel movements [Unknown]
  - Diarrhoea [Unknown]
  - Dehydration [Recovering/Resolving]

NARRATIVE: CASE EVENT DATE: 20170803
